FAERS Safety Report 6597022-1 (Version None)
Quarter: 2010Q1

REPORT INFORMATION
  Report Type: 
  Country: None (occurrence: None)
  Receive Date: 20100223
  Receipt Date: 20100217
  Transmission Date: 20100710
  Serious: Yes (Hospitalization)
  Sender: FDA-Public Use
  Company Number: A0845517A

PATIENT
  Age: 57 Year
  Sex: Female
  Weight: 73.6 kg

DRUGS (1)
  1. AVANDIA [Suspect]
     Route: 048
     Dates: start: 20021028, end: 20050601

REACTIONS (1)
  - MYOCARDIAL INFARCTION [None]
